FAERS Safety Report 17046444 (Version 2)
Quarter: 2019Q4

REPORT INFORMATION
  Report Type: Spontaneous
  Country: SE (occurrence: SE)
  Receive Date: 20191119
  Receipt Date: 20191122
  Transmission Date: 20200122
  Serious: Yes (Hospitalization)
  Sender: FDA-Public Use
  Company Number: SE-ASTRAZENECA-2019SF61988

PATIENT
  Age: 59 Year
  Sex: Female

DRUGS (1)
  1. ZOMIG [Suspect]
     Active Substance: ZOLMITRIPTAN
     Indication: MIGRAINE
     Dosage: 1.0DF AS REQUIRED
     Route: 048
     Dates: start: 2010

REACTIONS (1)
  - Coronary artery dissection [Recovered/Resolved]

NARRATIVE: CASE EVENT DATE: 20180427
